FAERS Safety Report 24080619 (Version 2)
Quarter: 2024Q4

REPORT INFORMATION
  Report Type: Report from Study
  Country: IN (occurrence: IN)
  Receive Date: 20240711
  Receipt Date: 20241231
  Transmission Date: 20250115
  Serious: Yes (Death, Other)
  Sender: NOVARTIS
  Company Number: IN-002147023-NVSC2024IN097761

PATIENT
  Age: 53 Year
  Sex: Male

DRUGS (1)
  1. CERTICAN [Suspect]
     Active Substance: EVEROLIMUS
     Indication: Liver transplant
     Dosage: 0.75 MG, QD
     Route: 048

REACTIONS (16)
  - Infection [Fatal]
  - Thrombocytopenia [Unknown]
  - Ascites [Unknown]
  - Urine output decreased [Unknown]
  - Pyrexia [Unknown]
  - Splenomegaly [Unknown]
  - Blood creatinine increased [Unknown]
  - Metabolic acidosis [Unknown]
  - Weight decreased [Unknown]
  - Escherichia urinary tract infection [Unknown]
  - Anisocytosis [Unknown]
  - Poikilocytosis [Unknown]
  - Red blood cell macrocytes present [Unknown]
  - Neutrophilia [Unknown]
  - Renal disorder [Unknown]
  - Shift to the left [Unknown]

NARRATIVE: CASE EVENT DATE: 20240423
